FAERS Safety Report 6633247-4 (Version None)
Quarter: 2010Q1

REPORT INFORMATION
  Report Type: 
  Country: None (occurrence: None)
  Receive Date: 20100312
  Receipt Date: 20100304
  Transmission Date: 20100710
  Serious: Yes (Hospitalization)
  Sender: FDA-Public Use
  Company Number: US-AMGEN-QUU397577

PATIENT
  Sex: Female

DRUGS (2)
  1. ENBREL [Suspect]
     Indication: RHEUMATOID ARTHRITIS
     Route: 058
     Dates: start: 20000223, end: 20080901
  2. ARAVA [Concomitant]

REACTIONS (2)
  - SPINAL FUSION SURGERY [None]
  - WHITE BLOOD CELL COUNT DECREASED [None]
